FAERS Safety Report 6973259-4 (Version None)
Quarter: 2010Q3

REPORT INFORMATION
  Report Type: 
  Country: None (occurrence: None)
  Receive Date: 20100824
  Receipt Date: 20100518
  Transmission Date: 20110219
  Serious: No
  Sender: FDA-Public Use
  Company Number: 308944

PATIENT
  Age: 55 Year
  Sex: Male

DRUGS (1)
  1. VICTOZA [Suspect]
     Indication: TYPE 2 DIABETES MELLITUS
     Dosage: SUBCUTANEOUS
     Route: 058
     Dates: start: 20100517

REACTIONS (3)
  - DIZZINESS [None]
  - GASTRIC DISORDER [None]
  - HEADACHE [None]
